FAERS Safety Report 11590464 (Version 2)
Quarter: 2015Q4

REPORT INFORMATION
  Report Type: Spontaneous
  Country: US (occurrence: US)
  Receive Date: 20151002
  Receipt Date: 20151005
  Transmission Date: 20160304
  Serious: Yes (Hospitalization, Other)
  Sender: FDA-Public Use
  Company Number: US-PFIZER INC-2015329696

PATIENT
  Age: 64 Year
  Sex: Female
  Weight: 54 kg

DRUGS (7)
  1. TOPIRAMATE. [Concomitant]
     Active Substance: TOPIRAMATE
     Indication: MOOD ALTERED
     Dosage: 150MG IN THE MORNING, 50MG AT NOON, 150MG AT NIGHT
     Route: 048
  2. LYRICA [Suspect]
     Active Substance: PREGABALIN
     Dosage: 300 MG, 2X/DAY
     Route: 048
  3. METHYLPHENIDATE. [Concomitant]
     Active Substance: METHYLPHENIDATE
     Indication: ATTENTION DEFICIT/HYPERACTIVITY DISORDER
     Dosage: 30MG PILL, THREE TIMES A DAY
     Route: 048
  4. ROPINIROLE. [Concomitant]
     Active Substance: ROPINIROLE
     Indication: RESTLESS LEGS SYNDROME
     Dosage: 4MG TABLET AS NEEDED
     Route: 048
  5. QUETIAPINE [Concomitant]
     Active Substance: QUETIAPINE
     Indication: SEDATION
     Dosage: 250MG PILLS BEFORE BED
     Route: 048
  6. LYRICA [Suspect]
     Active Substance: PREGABALIN
     Indication: PAIN
     Dosage: 200 MG, UNK
     Route: 048
  7. BUPROPION. [Concomitant]
     Active Substance: BUPROPION
     Indication: MOOD ALTERED
     Dosage: 300MG TABLET IN THE MORNING
     Route: 048

REACTIONS (14)
  - Back pain [Unknown]
  - Musculoskeletal discomfort [Unknown]
  - Attention deficit/hyperactivity disorder [Not Recovered/Not Resolved]
  - Asthenia [Unknown]
  - Drug effect incomplete [Unknown]
  - Back injury [Unknown]
  - Intentional product misuse [Unknown]
  - Limb injury [Unknown]
  - Intervertebral disc protrusion [Unknown]
  - Spinal column stenosis [Unknown]
  - Fall [Unknown]
  - Body height decreased [Unknown]
  - Back disorder [Unknown]
  - Chondropathy [Unknown]

NARRATIVE: CASE EVENT DATE: 2010
